FAERS Safety Report 5584239-8 (Version None)
Quarter: 2008Q1

REPORT INFORMATION
  Report Type: 
  Country: None (occurrence: None)
  Receive Date: 20080108
  Receipt Date: 20080103
  Transmission Date: 20080703
  Serious: Yes (Other)
  Sender: FDA-Public Use
  Company Number: B0359655A

PATIENT
  Sex: Female

DRUGS (2)
  1. SEROXAT [Suspect]
     Indication: OBSESSIVE-COMPULSIVE DISORDER
     Route: 065
     Dates: start: 19970430
  2. DIAZEPAM [Concomitant]
     Dates: start: 19840328

REACTIONS (19)
  - AGORAPHOBIA [None]
  - BIPOLAR I DISORDER [None]
  - DEPRESSED MOOD [None]
  - DIARRHOEA [None]
  - DISSOCIATION [None]
  - DRUG WITHDRAWAL SYNDROME [None]
  - EMOTIONAL DISORDER [None]
  - FATIGUE [None]
  - HEADACHE [None]
  - INTENTIONAL SELF-INJURY [None]
  - MIGRAINE [None]
  - MOOD SWINGS [None]
  - NEGATIVE THOUGHTS [None]
  - NIGHTMARE [None]
  - PERSONALITY DISORDER [None]
  - SUICIDAL IDEATION [None]
  - SUICIDE ATTEMPT [None]
  - VISION BLURRED [None]
  - WEIGHT INCREASED [None]
